FAERS Safety Report 7864584-3 (Version None)
Quarter: 2011Q4

REPORT INFORMATION
  Report Type: 
  Country: None (occurrence: None)
  Receive Date: 20111028
  Receipt Date: 20111020
  Transmission Date: 20120403
  Serious: Yes (Hospitalization, Other)
  Sender: FDA-Public Use
  Company Number: US-JNJFOC-20111009924

PATIENT
  Sex: Female
  Weight: 63.5 kg

DRUGS (16)
  1. FENTANYL-100 [Suspect]
     Route: 062
     Dates: start: 20110101
  2. FENTANYL-100 [Suspect]
     Route: 062
     Dates: start: 20110101
  3. FENTANYL-100 [Suspect]
     Route: 062
     Dates: start: 20110101
  4. FENTANYL-100 [Suspect]
     Route: 062
     Dates: start: 20110101
  5. FENTANYL-100 [Suspect]
     Indication: BACK PAIN
     Route: 062
     Dates: start: 20110101
  6. FENTANYL-100 [Suspect]
     Indication: ROAD TRAFFIC ACCIDENT
     Route: 062
     Dates: start: 20110101
  7. FENTANYL-100 [Suspect]
     Route: 062
     Dates: start: 20110101
  8. FENTANYL-100 [Suspect]
     Route: 062
     Dates: start: 20110101
  9. FENTANYL-100 [Suspect]
     Route: 062
     Dates: start: 20110101
  10. FENTANYL-100 [Suspect]
     Route: 062
     Dates: start: 20110101
  11. FENTANYL-100 [Suspect]
     Route: 062
     Dates: start: 20110101
  12. FENTANYL-100 [Suspect]
     Route: 062
     Dates: start: 20110101
  13. FENTANYL-100 [Suspect]
     Indication: ARTHRALGIA
     Route: 062
     Dates: start: 20110101
  14. FENTANYL-100 [Suspect]
     Indication: NECK PAIN
     Route: 062
     Dates: start: 20110101
  15. FENTANYL-100 [Suspect]
     Route: 062
     Dates: start: 20110101
  16. FENTANYL-100 [Suspect]
     Route: 062
     Dates: start: 20110101

REACTIONS (5)
  - GASTRITIS [None]
  - DEHYDRATION [None]
  - ABNORMAL LOSS OF WEIGHT [None]
  - PRODUCT QUALITY ISSUE [None]
  - NAUSEA [None]
